FAERS Safety Report 13860883 (Version 3)
Quarter: 2017Q4

REPORT INFORMATION
  Report Type: Spontaneous
  Country: CZ (occurrence: CZ)
  Receive Date: 20170811
  Receipt Date: 20171005
  Transmission Date: 20180320
  Serious: Yes (Hospitalization)
  Sender: FDA-Public Use
  Company Number: CZ-FRESENIUS KABI-FK201706902

PATIENT
  Age: 14 Year
  Sex: Male

DRUGS (5)
  1. NITROUS OXIDE. [Concomitant]
     Active Substance: NITROUS OXIDE
     Indication: PRODUCT USED FOR UNKNOWN INDICATION
  2. PROPOFOL LCT/MCT 10 MG/ML FRESENIUS [Suspect]
     Active Substance: PROPOFOL
     Indication: ANAESTHESIA
     Route: 042
     Dates: start: 20170720
  3. SEVORANE [Concomitant]
     Active Substance: SEVOFLURANE
     Indication: PRODUCT USED FOR UNKNOWN INDICATION
  4. CALYPSOL [Concomitant]
     Indication: PRODUCT USED FOR UNKNOWN INDICATION
  5. OXYGEN. [Concomitant]
     Active Substance: OXYGEN
     Indication: PRODUCT USED FOR UNKNOWN INDICATION

REACTIONS (8)
  - Multiple use of single-use product [Unknown]
  - Blood potassium increased [Recovered/Resolved]
  - Hepatic enzyme increased [Recovered/Resolved]
  - Wrong technique in product usage process [Unknown]
  - Myoglobin blood increased [Recovered/Resolved]
  - Hyperpyrexia [Recovered/Resolved]
  - Inadequate aseptic technique in use of product [Unknown]
  - Vomiting [Recovered/Resolved]

NARRATIVE: CASE EVENT DATE: 20170720
